FAERS Safety Report 9518226 (Version 2)
Quarter: 2013Q4

REPORT INFORMATION
  Report Type: Report from Study
  Country: CZ (occurrence: CZ)
  Receive Date: 20130912
  Receipt Date: 20131001
  Transmission Date: 20140711
  Serious: Yes (Hospitalization)
  Sender: FDA-Public Use
  Company Number: CZ-JNJFOC-20130904496

PATIENT
  Age: 46 Year
  Sex: Female
  Weight: 113 kg

DRUGS (9)
  1. GOLIMUMAB [Suspect]
     Indication: PSORIATIC ARTHROPATHY
     Route: 058
     Dates: start: 20130808
  2. METHOTREXATE [Concomitant]
     Indication: PSORIATIC ARTHROPATHY
     Route: 065
  3. ACIDUM FOLICUM [Concomitant]
     Indication: ARTHRITIS
     Route: 065
  4. CALCIUM [Concomitant]
     Indication: OSTEOPOROSIS PROPHYLAXIS
     Route: 065
  5. VIGANTOL [Concomitant]
     Indication: OSTEOPOROSIS PROPHYLAXIS
     Route: 065
  6. MILURIT [Concomitant]
     Indication: HYPERURICAEMIA
     Route: 065
  7. HELICID [Concomitant]
     Indication: GASTROINTESTINAL DISORDER THERAPY
     Route: 065
  8. ESSENTIALE FORTE [Concomitant]
     Indication: LIVER DISORDER
     Route: 065
  9. WARFARIN [Concomitant]
     Indication: PULMONARY EMBOLISM
     Dosage: 1,5 TABLET
     Route: 065

REACTIONS (1)
  - Thrombosis [Recovering/Resolving]
